FAERS Safety Report 10007180 (Version 1)
Quarter: 2014Q1

REPORT INFORMATION
  Report Type: Spontaneous
  Country: US (occurrence: US)
  Receive Date: 20140313
  Receipt Date: 20140313
  Transmission Date: 20141002
  Serious: No
  Sender: FDA-Public Use
  Company Number: US-PFIZER INC-2014072503

PATIENT
  Age: 30 Year
  Sex: Female
  Weight: 81.63 kg

DRUGS (2)
  1. ZOLOFT [Suspect]
     Indication: POSTPARTUM DEPRESSION
     Dosage: 200 MG, 1X/DAY
     Route: 048
     Dates: start: 201303, end: 201402
  2. TYLENOL [Concomitant]
     Indication: HEADACHE
     Dosage: UNK

REACTIONS (1)
  - Drug screen false positive [Unknown]
